FAERS Safety Report 6850788-5 (Version None)
Quarter: 2010Q3

REPORT INFORMATION
  Report Type: 
  Country: None (occurrence: None)
  Receive Date: 20100716
  Receipt Date: 20071022
  Transmission Date: 20110219
  Serious: No
  Sender: FDA-Public Use
  Company Number: US-PFIZER INC-2007090230

PATIENT
  Sex: Female
  Weight: 75 kg

DRUGS (13)
  1. CHANTIX [Suspect]
     Indication: SMOKING CESSATION THERAPY
     Route: 048
     Dates: start: 20070101, end: 20070101
  2. FISH OIL [Concomitant]
  3. VITAMINS [Concomitant]
  4. LEVOXYL [Concomitant]
  5. ENALAPRIL MALEATE [Concomitant]
  6. TRICOR [Concomitant]
  7. VYTORIN [Concomitant]
  8. GLIPIZIDE [Concomitant]
  9. CALCIUM [Concomitant]
  10. CHONDROITIN/GLUCOSAMINE [Concomitant]
  11. METHYLSULFONYLMETHANE [Concomitant]
  12. ACETYLSALICYLIC ACID [Concomitant]
  13. OPHTHALMOLOGICALS [Concomitant]

REACTIONS (3)
  - DECREASED APPETITE [None]
  - FATIGUE [None]
  - NAUSEA [None]
